FAERS Safety Report 8423955-7 (Version None)
Quarter: 2012Q2

REPORT INFORMATION
  Report Type: 
  Country: None (occurrence: None)
  Receive Date: 20120608
  Receipt Date: 20120529
  Transmission Date: 20120825
  Serious: No
  Sender: FDA-Public Use
  Company Number: US-ASTRAZENECA-2012SE35765

PATIENT
  Age: 48 Year
  Sex: Female

DRUGS (4)
  1. SYMBICORT [Concomitant]
  2. NEXIUM [Suspect]
     Dosage: NEXIUM WAS DOUBLED
     Route: 048
  3. RHINOCORT [Suspect]
     Dosage: RHINOCORT WAS DOUBLED
     Route: 045
  4. NEXIUM [Suspect]
     Route: 048

REACTIONS (2)
  - BRONCHIECTASIS [None]
  - SINUSITIS [None]
